FAERS Safety Report 6220954-0 (Version None)
Quarter: 2009Q2

REPORT INFORMATION
  Report Type: 
  Country: None (occurrence: None)
  Receive Date: 20090610
  Receipt Date: 20090531
  Transmission Date: 20091009
  Serious: Yes (Other)
  Sender: FDA-Public Use
  Company Number: IL-ELI_LILLY_AND_COMPANY-IL200905004205

PATIENT
  Sex: Male

DRUGS (9)
  1. EXENATIDE [Suspect]
     Indication: DIABETES MELLITUS
     Dosage: 5 UG, 2/D
     Route: 058
     Dates: start: 20070516, end: 20070611
  2. EXENATIDE [Suspect]
     Dosage: 10 MG, 2/D
     Route: 058
     Dates: start: 20070612
  3. PIOGLITAZONE [Suspect]
     Indication: DIABETES MELLITUS
     Dosage: 45 MG, DAILY (1/D)
     Route: 065
     Dates: start: 20080407, end: 20090501
  4. GLUCOPHAGE [Concomitant]
     Indication: DIABETES MELLITUS
     Dosage: 850 MG, 2/D
     Route: 048
     Dates: start: 19970101
  5. TRITACE [Concomitant]
     Indication: HYPERTENSION
     Dosage: UNK, UNKNOWN
     Route: 065
     Dates: start: 20010101
  6. NORMITEN [Concomitant]
     Indication: HYPERTENSION
     Dosage: UNK, UNKNOWN
     Route: 065
     Dates: start: 20090201
  7. ASPIRIN [Concomitant]
     Indication: PROPHYLAXIS
     Dosage: UNK, UNKNOWN
     Route: 065
     Dates: start: 19900101
  8. SIMOVIL [Concomitant]
     Indication: HYPERLIPIDAEMIA
     Dosage: UNK, UNKNOWN
     Route: 065
     Dates: start: 20070101
  9. METFORMIN [Concomitant]
     Indication: DIABETES MELLITUS
     Dosage: 250 MG, 2/D
     Route: 065
     Dates: start: 19970101

REACTIONS (1)
  - MACULAR OEDEMA [None]
